FAERS Safety Report 6888706-6 (Version None)
Quarter: 2010Q3

REPORT INFORMATION
  Report Type: 
  Country: None (occurrence: None)
  Receive Date: 20100730
  Receipt Date: 20071022
  Transmission Date: 20110219
  Serious: No
  Sender: FDA-Public Use
  Company Number: US-PFIZER INC-2007024312

PATIENT
  Sex: Male
  Weight: 106.59 kg

DRUGS (4)
  1. LIPITOR [Suspect]
     Indication: HYPERLIPIDAEMIA
     Dates: start: 19980101
  2. ZETIA [Suspect]
     Dates: start: 20030101
  3. DRUG, UNSPECIFIED [Concomitant]
  4. COREG [Concomitant]

REACTIONS (1)
  - BLOOD CREATININE INCREASED [None]
